FAERS Safety Report 6969131-6 (Version None)
Quarter: 2010Q3

REPORT INFORMATION
  Report Type: 
  Country: None (occurrence: None)
  Receive Date: 20100907
  Receipt Date: 20100827
  Transmission Date: 20110219
  Serious: Yes (Hospitalization)
  Sender: FDA-Public Use
  Company Number: GXKR2010US09775

PATIENT
  Age: 63 Year
  Sex: Female

DRUGS (12)
  1. WARFARIN SODIUM [Suspect]
     Dosage: 2.5 MG, 4 TIMES PER WEEK
     Route: 048
  2. WARFARIN SODIUM [Suspect]
     Dosage: 2 TABS 3 DAYS PER WEEK
     Route: 048
  3. ALLOPURINOL [Concomitant]
  4. VITAMIN B-12 [Concomitant]
  5. TOLTERODINE [Concomitant]
  6. HYDROCHLOROTHIAZIDE [Concomitant]
  7. LOSARTAN POTASSIUM [Concomitant]
  8. AMLODIPINE [Concomitant]
  9. OMEPRAZOLE [Concomitant]
  10. CLOPIDOGREL [Concomitant]
  11. METOPROLOL TARTRATE [Concomitant]
  12. SIMVASTATIN [Concomitant]

REACTIONS (5)
  - CALCIPHYLAXIS [None]
  - CELLULITIS [None]
  - DEBRIDEMENT [None]
  - SKIN DISCOLOURATION [None]
  - SKIN ULCER [None]
